FAERS Safety Report 8024193-2 (Version None)
Quarter: 2012Q1

REPORT INFORMATION
  Report Type: 
  Country: None (occurrence: None)
  Receive Date: 20120105
  Receipt Date: 20111229
  Transmission Date: 20120608
  Serious: Yes (Other)
  Sender: FDA-Public Use
  Company Number: US-PFIZER INC-2011317075

PATIENT
  Age: 48 Year
  Sex: Female

DRUGS (1)
  1. FLAGYL [Suspect]
     Indication: VAGINAL INFECTION
     Dosage: 500 MG TWICE DAILY

REACTIONS (1)
  - PARKINSONISM [None]
